FAERS Safety Report 24617281 (Version 1)
Quarter: 2024Q4

REPORT INFORMATION
  Report Type: Spontaneous
  Country: US (occurrence: US)
  Receive Date: 20241114
  Receipt Date: 20241114
  Transmission Date: 20250114
  Serious: Yes (Hospitalization)
  Sender: ALEXION PHARMACEUTICALS
  Company Number: US-ASTRAZENECA-202410USA029558US

PATIENT

DRUGS (8)
  1. FULVESTRANT [Suspect]
     Active Substance: FULVESTRANT
  2. FULVESTRANT [Suspect]
     Active Substance: FULVESTRANT
  3. FULVESTRANT [Suspect]
     Active Substance: FULVESTRANT
  4. FULVESTRANT [Suspect]
     Active Substance: FULVESTRANT
  5. IBRANCE [Suspect]
     Active Substance: PALBOCICLIB
  6. IBRANCE [Suspect]
     Active Substance: PALBOCICLIB
  7. IBRANCE [Suspect]
     Active Substance: PALBOCICLIB
  8. IBRANCE [Suspect]
     Active Substance: PALBOCICLIB

REACTIONS (4)
  - Gastroenteritis viral [Unknown]
  - COVID-19 [Unknown]
  - White blood cell count decreased [Unknown]
  - Urinary tract infection [Unknown]
